FAERS Safety Report 6871369-3 (Version None)
Quarter: 2010Q3

REPORT INFORMATION
  Report Type: 
  Country: None (occurrence: None)
  Receive Date: 20100723
  Receipt Date: 20100713
  Transmission Date: 20110219
  Serious: Yes (Hospitalization, Other)
  Sender: FDA-Public Use
  Company Number: US-PFIZER INC-2009290478

PATIENT
  Sex: Female

DRUGS (12)
  1. CHANTIX [Suspect]
     Indication: SMOKING CESSATION THERAPY
     Dosage: 0.5MG/1MG
     Route: 048
     Dates: start: 20070910, end: 20071201
  2. EFFEXOR [Concomitant]
     Indication: POSTPARTUM DEPRESSION
     Dosage: UNK
     Dates: start: 20050101, end: 20080101
  3. EFFEXOR [Concomitant]
     Indication: DEPRESSION
  4. EFFEXOR [Concomitant]
     Indication: SUICIDE ATTEMPT
  5. HYDROCODONE [Concomitant]
     Indication: ABDOMINAL PAIN
     Dosage: UNK
     Dates: start: 20020101, end: 20080101
  6. HYDROCODONE [Concomitant]
     Indication: BACK PAIN
  7. HYDROCODONE [Concomitant]
     Indication: MUSCULOSKELETAL PAIN
  8. HYDROCODONE [Concomitant]
     Indication: ENDOMETRIOSIS
  9. KETOROLAC [Concomitant]
     Indication: ABDOMINAL PAIN
     Dosage: UNK
     Dates: start: 20050101, end: 20080101
  10. KETOROLAC [Concomitant]
     Indication: ENDOMETRIOSIS
  11. KETOROLAC [Concomitant]
     Indication: BACK PAIN
  12. KETOROLAC [Concomitant]
     Indication: MUSCULOSKELETAL PAIN

REACTIONS (6)
  - ANXIETY [None]
  - DEPRESSION [None]
  - INSOMNIA [None]
  - INTENTIONAL OVERDOSE [None]
  - IRRITABILITY [None]
  - SUICIDE ATTEMPT [None]
